FAERS Safety Report 4988180-0 (Version None)
Quarter: 2006Q2

REPORT INFORMATION
  Report Type: 
  Country: None (occurrence: None)
  Receive Date: 20060501
  Receipt Date: 20060421
  Transmission Date: 20061013
  Serious: Yes (Hospitalization, Other)
  Sender: FDA-Public Use
  Company Number: US-MERCK-0604USA03648

PATIENT
  Age: 66 Year
  Sex: Male
  Weight: 86 kg

DRUGS (9)
  1. VIOXX [Suspect]
     Indication: ARTHRITIS
     Route: 048
     Dates: start: 20000401, end: 20040701
  2. ASPIRIN [Concomitant]
     Route: 065
  3. WELCHOL [Concomitant]
     Route: 065
  4. ZOLOFT [Concomitant]
     Route: 065
  5. NEXIUM [Concomitant]
     Route: 065
  6. ZOCOR [Concomitant]
     Route: 048
  7. ZESTRIL [Concomitant]
     Route: 065
  8. NEURONTIN [Concomitant]
     Route: 065
  9. AGGRENOX [Concomitant]
     Route: 065

REACTIONS (2)
  - CEREBROVASCULAR ACCIDENT [None]
  - MYOCARDIAL INFARCTION [None]
